FAERS Safety Report 8487024-2 (Version None)
Quarter: 2012Q3

REPORT INFORMATION
  Report Type: 
  Country: None (occurrence: None)
  Receive Date: 20120704
  Receipt Date: 20120629
  Transmission Date: 20120928
  Serious: Yes (Hospitalization)
  Sender: FDA-Public Use
  Company Number: PHHY2012FR056777

PATIENT
  Age: 82 Year
  Sex: Female

DRUGS (21)
  1. PENTOXIFYLLINE [Concomitant]
  2. LASIX [Suspect]
     Dosage: 40 MG, UNK
     Route: 048
  3. AMLODIPINE BESYLATE [Concomitant]
  4. ACUPAN [Concomitant]
  5. PREDNISONE TAB [Concomitant]
     Dosage: UNK
     Dates: start: 20120401
  6. CATAPRES [Concomitant]
  7. KARDEGIC [Concomitant]
  8. POLARAMINE [Concomitant]
  9. GAVISCON [Concomitant]
  10. TEGRETOL [Suspect]
     Dosage: 200 MG, UNK
     Route: 048
  11. PERINDOPRIL ERBUMINE [Concomitant]
  12. EUPRESSYL [Concomitant]
     Dosage: UNK
     Dates: start: 20120401
  13. FOSAMAX [Concomitant]
     Dosage: UNK
     Dates: start: 20120401
  14. ESOMEPRAZOLE [Concomitant]
     Dosage: UNK
     Dates: start: 20120401
  15. ATORVASTATIN [Concomitant]
  16. BISOPROLOL FUMARATE [Concomitant]
  17. CACIT D3 [Concomitant]
     Dosage: UNK
     Dates: start: 20120401
  18. LEVOTHYROXINE SODIUM [Concomitant]
  19. FERROUS SULFATE TAB [Concomitant]
  20. TRAMADOL HCL [Suspect]
     Dosage: 50 MG, UNK
     Route: 048
  21. ATARAX [Concomitant]
     Dosage: UNK
     Dates: start: 20120401

REACTIONS (1)
  - HYPONATRAEMIA [None]
